FAERS Safety Report 19089017 (Version 1)
Quarter: 2021Q2

REPORT INFORMATION
  Report Type: Spontaneous
  Country: US (occurrence: US)
  Receive Date: 20210403
  Receipt Date: 20210403
  Transmission Date: 20210717
  Serious: No
  Sender: FDA-Public Use
  Company Number: US-LUPIN PHARMACEUTICALS INC.-2021-03850

PATIENT
  Age: 4 Month
  Sex: Female

DRUGS (1)
  1. FAMOTIDINE FOR ORAL SUSPENSION USP 40 MG/5ML [Suspect]
     Active Substance: FAMOTIDINE
     Indication: ACID PEPTIC DISEASE
     Dosage: 1 MILLILITER, QD
     Route: 048
     Dates: start: 20210107

REACTIONS (2)
  - Expired product administered [Unknown]
  - No adverse event [Unknown]

NARRATIVE: CASE EVENT DATE: 20210307
